FAERS Safety Report 4558093-7 (Version None)
Quarter: 2005Q1

REPORT INFORMATION
  Report Type: 
  Country: None (occurrence: None)
  Receive Date: 20050121
  Receipt Date: 20040127
  Transmission Date: 20050727
  Serious: No
  Sender: FDA-Public Use
  Company Number: US-BRISTOL-MYERS SQUIBB COMPANY-12744199

PATIENT
  Sex: Male

DRUGS (1)
  1. SERZONE [Suspect]
     Dosage: 100 MG BID AND TID
     Route: 048
     Dates: start: 19970620, end: 20020101

REACTIONS (4)
  - AGITATION [None]
  - ANGER [None]
  - ASPARTATE AMINOTRANSFERASE INCREASED [None]
  - LOSS OF LIBIDO [None]
